FAERS Safety Report 5522487-3 (Version None)
Quarter: 2007Q4

REPORT INFORMATION
  Report Type: 
  Country: None (occurrence: None)
  Receive Date: 20071120
  Receipt Date: 20071113
  Transmission Date: 20080405
  Serious: Yes (Hospitalization)
  Sender: FDA-Public Use
  Company Number: US-ELI_LILLY_AND_COMPANY-US200711003175

PATIENT
  Sex: Male

DRUGS (11)
  1. BYETTA [Suspect]
     Dosage: 5 UG, 2/D
     Route: 058
     Dates: start: 20071001, end: 20071101
  2. BYETTA [Suspect]
     Dosage: 5 UG, 2/D
     Route: 058
     Dates: start: 20071101
  3. METFORMIN HYDROCHLORIDE [Concomitant]
     Dosage: UNK, UNKNOWN
     Route: 048
  4. PLAVIX [Concomitant]
  5. LOPRESSOR [Concomitant]
  6. CARDIZEM [Concomitant]
  7. COLACE [Concomitant]
  8. ASPIRIN [Concomitant]
     Dosage: 81 MG, UNK
  9. LIPITOR [Concomitant]
  10. LYRICA [Concomitant]
  11. SPIRIVA [Concomitant]

REACTIONS (2)
  - CORONARY ARTERY OCCLUSION [None]
  - RASH GENERALISED [None]
